FAERS Safety Report 7927437-8 (Version None)
Quarter: 2011Q4

REPORT INFORMATION
  Report Type: 
  Country: None (occurrence: None)
  Receive Date: 20111118
  Receipt Date: 20111115
  Transmission Date: 20120403
  Serious: Yes (Other)
  Sender: FDA-Public Use
  Company Number: FR-AMGEN-FRASP2011059903

PATIENT
  Age: 57 Year
  Sex: Male

DRUGS (3)
  1. NEULASTA [Suspect]
     Indication: CHEMOTHERAPY
  2. FOLFIRI [Concomitant]
     Indication: COLON CANCER METASTATIC
  3. AVASTIN [Concomitant]
     Indication: COLON CANCER METASTATIC

REACTIONS (3)
  - CHOLESTASIS [None]
  - ASTHENIA [None]
  - PYREXIA [None]
